FAERS Safety Report 8295395 (Version 2)
Quarter: 2014Q3

REPORT INFORMATION
  Report Type: Spontaneous
  Country: US (occurrence: US)
  Receive Date: 20111216
  Receipt Date: 20140908
  Transmission Date: 20150326
  Serious: No
  Sender: FDA-Public Use
  Company Number: US-BRISTOL-MYERS SQUIBB COMPANY-15893605

PATIENT
  Age: 65 Year
  Sex: Male
  Weight: 86.17 kg

DRUGS (8)
  1. RISPERIDONE. [Concomitant]
     Active Substance: RISPERIDONE
     Dosage: ALSO 2MG
     Dates: start: 20020429, end: 20091004
  2. ALPRAZOLAM. [Concomitant]
     Active Substance: ALPRAZOLAM
     Dates: start: 200802, end: 2011
  3. ABILIFY [Suspect]
     Active Substance: ARIPIPRAZOLE
     Indication: POST-TRAUMATIC STRESS DISORDER
     Dosage: 14NOV2008-24NOV2008
     Route: 048
     Dates: start: 20081114, end: 201011
  4. GABAPENTIN. [Concomitant]
     Active Substance: GABAPENTIN
     Dosage: ALSO 800MG
     Dates: start: 20020313, end: 20111013
  5. TRAZODONE HYDROCHLORIDE. [Concomitant]
     Active Substance: TRAZODONE HYDROCHLORIDE
     Dosage: ALSO 300MG
     Dates: start: 20020429, end: 20111207
  6. EFFEXOR [Concomitant]
     Active Substance: VENLAFAXINE HYDROCHLORIDE
  7. WELLBUTRIN [Concomitant]
     Active Substance: BUPROPION HYDROCHLORIDE
     Dates: start: 20060615, end: 20111013
  8. ZOLOFT [Concomitant]
     Active Substance: SERTRALINE HYDROCHLORIDE
     Dosage: ALSO 200MG
     Dates: start: 20011210, end: 20110105

REACTIONS (5)
  - Akathisia [Unknown]
  - Irritability [Unknown]
  - Pruritus [Not Recovered/Not Resolved]
  - Parkinsonism [Unknown]
  - Tardive dyskinesia [Unknown]

NARRATIVE: CASE EVENT DATE: 2010
